FAERS Safety Report 23450082 (Version 2)
Quarter: 2024Q1

REPORT INFORMATION
  Report Type: Report from Study
  Country: US (occurrence: None)
  Receive Date: 20240129
  Receipt Date: 20240202
  Transmission Date: 20240410
  Serious: No
  Sender: FDA-Public Use
  Company Number: 2024A020837

PATIENT
  Sex: Female

DRUGS (1)
  1. FARXIGA [Suspect]
     Active Substance: DAPAGLIFLOZIN PROPANEDIOL
     Indication: Chronic kidney disease
     Route: 048
     Dates: start: 202211

REACTIONS (5)
  - Hypotension [Unknown]
  - Renal impairment [Unknown]
  - Glomerular filtration rate decreased [Unknown]
  - Chest discomfort [Unknown]
  - Drug ineffective [Unknown]
